FAERS Safety Report 11818041 (Version 2)
Quarter: 2017Q2

REPORT INFORMATION
  Report Type: Spontaneous
  Country: US (occurrence: US)
  Receive Date: 20151210
  Receipt Date: 20170406
  Transmission Date: 20170829
  Serious: No
  Sender: FDA-Public Use
  Company Number: US-JNJFOC-20151107536

PATIENT
  Age: 54 Year
  Sex: Male

DRUGS (15)
  1. RISPERDAL [Suspect]
     Active Substance: RISPERIDONE
     Indication: IRRITABILITY
     Dosage: 2MG-4MG
     Route: 048
     Dates: start: 2011, end: 20141115
  2. RISPERDAL [Suspect]
     Active Substance: RISPERIDONE
     Indication: HALLUCINATION, AUDITORY
     Dosage: 2MG-4MG
     Route: 048
     Dates: start: 2011, end: 20141115
  3. RISPERDAL [Suspect]
     Active Substance: RISPERIDONE
     Indication: AFFECTIVE DISORDER
     Dosage: 2MG-4MG
     Route: 048
     Dates: start: 2011, end: 20141115
  4. RISPERIDONE. [Suspect]
     Active Substance: RISPERIDONE
     Indication: PRODUCT USED FOR UNKNOWN INDICATION
     Route: 048
  5. RISPERDAL [Suspect]
     Active Substance: RISPERIDONE
     Indication: SUSPICIOUSNESS
     Dosage: 2MG-4MG
     Route: 048
     Dates: start: 2011, end: 20141115
  6. RISPERIDONE. [Suspect]
     Active Substance: RISPERIDONE
     Indication: PRODUCT USED FOR UNKNOWN INDICATION
     Route: 048
  7. RISPERDAL [Suspect]
     Active Substance: RISPERIDONE
     Indication: HYPOMANIA
     Dosage: 2MG-4MG
     Route: 048
     Dates: start: 2011, end: 20141115
  8. RISPERDAL [Suspect]
     Active Substance: RISPERIDONE
     Indication: IMPULSIVE BEHAVIOUR
     Dosage: 2MG-4MG
     Route: 048
     Dates: start: 2011, end: 20141115
  9. RISPERDAL [Suspect]
     Active Substance: RISPERIDONE
     Indication: DEPRESSION
     Dosage: 2MG-4MG
     Route: 048
     Dates: start: 2011, end: 20141115
  10. RISPERDAL [Suspect]
     Active Substance: RISPERIDONE
     Indication: ASTHENIA
     Dosage: 2MG-4MG
     Route: 048
     Dates: start: 2011, end: 20141115
  11. RISPERDAL [Suspect]
     Active Substance: RISPERIDONE
     Indication: BIPOLAR DISORDER
     Dosage: 2MG-4MG
     Route: 048
     Dates: start: 2011, end: 20141115
  12. RISPERDAL [Suspect]
     Active Substance: RISPERIDONE
     Indication: APATHY
     Dosage: 2MG-4MG
     Route: 048
     Dates: start: 2011, end: 20141115
  13. RISPERDAL [Suspect]
     Active Substance: RISPERIDONE
     Indication: PARANOIA
     Dosage: 2MG-4MG
     Route: 048
     Dates: start: 2011, end: 20141115
  14. RISPERDAL [Suspect]
     Active Substance: RISPERIDONE
     Indication: AGITATION
     Dosage: 2MG-4MG
     Route: 048
     Dates: start: 2011, end: 20141115
  15. RISPERDAL [Suspect]
     Active Substance: RISPERIDONE
     Indication: AGGRESSION
     Dosage: 2MG-4MG
     Route: 048
     Dates: start: 2011, end: 20141115

REACTIONS (4)
  - Sedation [Unknown]
  - Gynaecomastia [Unknown]
  - Akathisia [Unknown]
  - Obesity [Unknown]

NARRATIVE: CASE EVENT DATE: 2011
